FAERS Safety Report 5833537-9 (Version None)
Quarter: 2008Q3

REPORT INFORMATION
  Report Type: 
  Country: None (occurrence: None)
  Receive Date: 20080804
  Receipt Date: 20080804
  Transmission Date: 20090109
  Serious: No
  Sender: FDA-Public Use
  Company Number: None

PATIENT
  Sex: Male
  Weight: 81.6475 kg

DRUGS (1)
  1. CIPRO [Suspect]
     Indication: PROSTATITIS
     Dosage: 2/DAY PO
     Route: 048
     Dates: start: 20071222, end: 20071231

REACTIONS (3)
  - ACTIVITIES OF DAILY LIVING IMPAIRED [None]
  - ERYTHEMA [None]
  - NEUROPATHY PERIPHERAL [None]
